FAERS Safety Report 12911499 (Version 1)
Quarter: 2016Q4

REPORT INFORMATION
  Report Type: Spontaneous
  Country: DE (occurrence: DE)
  Receive Date: 20161104
  Receipt Date: 20161104
  Transmission Date: 20170207
  Serious: Yes (Life-Threatening, Other)
  Sender: FDA-Public Use
  Company Number: PHHY2016DE150861

PATIENT

DRUGS (4)
  1. CISPLATIN. [Suspect]
     Active Substance: CISPLATIN
     Indication: GASTRIC CANCER
  2. CISPLATIN. [Suspect]
     Active Substance: CISPLATIN
     Indication: METASTASES TO PERITONEUM
     Dosage: 7.5 MG/M2,  30 MIN AT 37 ?C AND 12 MMHG AT 6 WEEK INTERVALS
     Route: 065
  3. DOXORUBICIN [Suspect]
     Active Substance: DOXORUBICIN
     Indication: METASTASES TO PERITONEUM
     Dosage: 1.5 MG/M2, 30 MIN AT 37 ?C AND 12 MMHG AT 6 WEEK INTERVALS
     Route: 065
  4. DOXORUBICIN [Suspect]
     Active Substance: DOXORUBICIN
     Indication: GASTRIC CANCER

REACTIONS (3)
  - Hypersensitivity [Unknown]
  - Drug effect incomplete [Unknown]
  - Rhabdomyolysis [Unknown]
